FAERS Safety Report 7298148-X (Version None)
Quarter: 2011Q1

REPORT INFORMATION
  Report Type: 
  Country: None (occurrence: None)
  Receive Date: 20110217
  Receipt Date: 20110204
  Transmission Date: 20110831
  Serious: Yes (Hospitalization, Other)
  Sender: FDA-Public Use
  Company Number: US-ELI_LILLY_AND_COMPANY-US201012001336

PATIENT
  Sex: Female
  Weight: 54.422 kg

DRUGS (13)
  1. GLUCOSAMINE [Concomitant]
     Dosage: UNK, UNKNOWN
     Route: 065
  2. MULTI-VITAMIN [Concomitant]
     Dosage: UNK, UNKNOWN
     Route: 065
  3. FORTEO [Suspect]
     Indication: OSTEOPOROSIS
     Dosage: 20 UG, DAILY (1/D)
     Route: 058
     Dates: start: 20100201
  4. OXYCODONE AND ACETAMINOPHEN [Concomitant]
     Dosage: UNK, UNKNOWN
     Route: 065
  5. LOVAZA [Concomitant]
     Dosage: UNK, UNKNOWN
     Route: 065
  6. SYNTHROID [Concomitant]
     Dosage: UNK, UNKNOWN
     Route: 065
  7. OMEPRAZOLE [Concomitant]
     Dosage: UNK, UNKNOWN
     Route: 065
  8. CYMBALTA [Concomitant]
     Dosage: UNK, UNKNOWN
     Route: 065
  9. CLONAZEPAM [Concomitant]
     Dosage: UNK, UNKNOWN
     Route: 065
  10. CHONDROITIN [Concomitant]
     Dosage: UNK, UNKNOWN
     Route: 065
  11. ASPIRIN [Concomitant]
     Dosage: UNK, UNKNOWN
     Route: 065
  12. NEURONTIN [Concomitant]
     Dosage: UNK, UNKNOWN
     Route: 065
  13. TOPRAL [Concomitant]
     Dosage: UNK, UNKNOWN
     Route: 065

REACTIONS (5)
  - FALL [None]
  - ARTHRALGIA [None]
  - HIP FRACTURE [None]
  - PAIN [None]
  - DRUG DOSE OMISSION [None]
